FAERS Safety Report 5993608-3 (Version None)
Quarter: 2008Q4

REPORT INFORMATION
  Report Type: 
  Country: None (occurrence: None)
  Receive Date: 20081212
  Receipt Date: 20081204
  Transmission Date: 20090506
  Serious: Yes (Hospitalization)
  Sender: FDA-Public Use
  Company Number: PHBS2008DE06586

PATIENT
  Age: 47 Year
  Sex: Male

DRUGS (3)
  1. CYCLOSPORINE [Suspect]
     Indication: RENAL TRANSPLANT
  2. AZATHIOPRINE [Suspect]
     Indication: RENAL TRANSPLANT
  3. STEROIDS NOS [Suspect]
     Indication: RENAL TRANSPLANT

REACTIONS (6)
  - BRONCHIAL WALL THICKENING [None]
  - DYSPNOEA [None]
  - LYMPHOCYTIC INFILTRATION [None]
  - PULMONARY FIBROSIS [None]
  - PULMONARY FUNCTION TEST ABNORMAL [None]
  - PULMONARY HYPERTENSION [None]
